FAERS Safety Report 24981465 (Version 1)
Quarter: 2025Q1

REPORT INFORMATION
  Report Type: Spontaneous
  Country: US (occurrence: None)
  Receive Date: 20250218
  Receipt Date: 20250218
  Transmission Date: 20250409
  Serious: Yes (Hospitalization)
  Sender: FDA-CTU
  Company Number: None

PATIENT
  Age: 46 Year
  Sex: Female
  Weight: 54 kg

DRUGS (4)
  1. FLUOROURACIL [Suspect]
     Active Substance: FLUOROURACIL
     Dates: end: 20250131
  2. LEUCOVORIN CALCIUM [Suspect]
     Active Substance: LEUCOVORIN CALCIUM
     Dates: end: 20250131
  3. ELOXATIN [Suspect]
     Active Substance: OXALIPLATIN
     Dates: end: 20250131
  4. NIVOLUMAB [Suspect]
     Active Substance: NIVOLUMAB
     Dates: end: 20250131

REACTIONS (2)
  - Anaemia [None]
  - Device dislocation [None]

NARRATIVE: CASE EVENT DATE: 20250207
